FAERS Safety Report 7903556-7 (Version None)
Quarter: 2011Q4

REPORT INFORMATION
  Report Type: 
  Country: None (occurrence: None)
  Receive Date: 20111109
  Receipt Date: 20111109
  Transmission Date: 20120403
  Serious: Yes (Life-Threatening, Hospitalization, Other)
  Sender: FDA-Public Use
  Company Number: None

PATIENT
  Age: 76 Year
  Sex: Male

DRUGS (2)
  1. KRYSTEXXA [Concomitant]
     Dates: start: 20111025, end: 20111025
  2. KRYSTEXXA [Suspect]
     Indication: GOUT
     Dosage: 8MG
     Route: 043
     Dates: start: 20111011, end: 20111011

REACTIONS (1)
  - CEREBROVASCULAR ACCIDENT [None]
